FAERS Safety Report 7751754-8 (Version None)
Quarter: 2011Q3

REPORT INFORMATION
  Report Type: 
  Country: None (occurrence: None)
  Receive Date: 20110915
  Receipt Date: 20110830
  Transmission Date: 20111222
  Serious: No
  Sender: FDA-Public Use
  Company Number: US-BIOGENIDEC-2011BI034350

PATIENT
  Sex: Male

DRUGS (3)
  1. AVONEX [Suspect]
     Indication: MULTIPLE SCLEROSIS
     Route: 030
     Dates: start: 20110501, end: 20110601
  2. AVONEX [Suspect]
     Route: 030
     Dates: start: 20030601, end: 20100601
  3. AVONEX [Suspect]
     Route: 030

REACTIONS (3)
  - ADVERSE DRUG REACTION [None]
  - RASH PRURITIC [None]
  - OEDEMA PERIPHERAL [None]
